FAERS Safety Report 13304931 (Version 1)
Quarter: 2017Q1

REPORT INFORMATION
  Report Type: Spontaneous
  Country: US (occurrence: US)
  Receive Date: 20170308
  Receipt Date: 20170308
  Transmission Date: 20170428
  Serious: Yes (Disabling)
  Sender: FDA-Public Use
  Company Number: None

PATIENT
  Age: 58 Year
  Sex: Female
  Weight: 69.75 kg

DRUGS (4)
  1. FOSAMAX [Concomitant]
     Active Substance: ALENDRONATE SODIUM
  2. ERIVEDGE [Suspect]
     Active Substance: VISMODEGIB
     Indication: BASAL CELL CARCINOMA
     Dosage: ?          QUANTITY:1 CAPSULE(S);?
     Route: 048
     Dates: start: 20160728, end: 20170302
  3. CA+ AND VITAMIN D-3 [Concomitant]
  4. VITAMIN D3 [Concomitant]
     Active Substance: CHOLECALCIFEROL

REACTIONS (9)
  - Muscle spasms [None]
  - Body height decreased [None]
  - Musculoskeletal pain [None]
  - Activities of daily living impaired [None]
  - Arthralgia [None]
  - Quality of life decreased [None]
  - Sleep disorder [None]
  - Osteoporosis [None]
  - Spinal pain [None]

NARRATIVE: CASE EVENT DATE: 20170307
